FAERS Safety Report 18419618 (Version 1)
Quarter: 2020Q4

REPORT INFORMATION
  Report Type: Spontaneous
  Country: US (occurrence: US)
  Receive Date: 20201023
  Receipt Date: 20201023
  Transmission Date: 20210114
  Serious: Yes (Hospitalization)
  Sender: FDA-Public Use
  Company Number: None

PATIENT
  Age: 57 Year
  Sex: Male
  Weight: 99 kg

DRUGS (8)
  1. YESCARTA [Suspect]
     Active Substance: AXICABTAGENE CILOLEUCEL
     Indication: DIFFUSE LARGE B-CELL LYMPHOMA
     Dosage: ?          OTHER FREQUENCY:ONCE;?
     Route: 042
     Dates: start: 20190521, end: 20190521
  2. LOSARTAN. [Concomitant]
     Active Substance: LOSARTAN
  3. FLUDARABINE [Concomitant]
     Active Substance: FLUDARABINE PHOSPHATE
     Dates: start: 20190515, end: 20190517
  4. ACYCLOVIR. [Concomitant]
     Active Substance: ACYCLOVIR
  5. ALLOPURINOL. [Concomitant]
     Active Substance: ALLOPURINOL
  6. FUROSEMIDE. [Concomitant]
     Active Substance: FUROSEMIDE
  7. METOPROLOL. [Concomitant]
     Active Substance: METOPROLOL
  8. CYTOXAN [Concomitant]
     Active Substance: CYCLOPHOSPHAMIDE
     Dates: start: 20190515, end: 20190517

REACTIONS (18)
  - Tremor [None]
  - Hiccups [None]
  - Excessive eye blinking [None]
  - Orthostatic hypotension [None]
  - Disturbance in attention [None]
  - Hypotension [None]
  - Cardiorenal syndrome [None]
  - Weight decreased [None]
  - Pyrexia [None]
  - Tachycardia [None]
  - Multiple organ dysfunction syndrome [None]
  - Haemodynamic instability [None]
  - Fluid overload [None]
  - Confusional state [None]
  - Sepsis [None]
  - Neurotoxicity [None]
  - Blood creatinine abnormal [None]
  - Acute kidney injury [None]

NARRATIVE: CASE EVENT DATE: 20190522
